FAERS Safety Report 8056630-1 (Version None)
Quarter: 2012Q1

REPORT INFORMATION
  Report Type: 
  Country: None (occurrence: None)
  Receive Date: 20120119
  Receipt Date: 20120111
  Transmission Date: 20120608
  Serious: Yes (Other)
  Sender: FDA-Public Use
  Company Number: CHPA2012US001024

PATIENT
  Age: 50 Year
  Sex: Female

DRUGS (4)
  1. NICOTINE [Concomitant]
     Dosage: UNK, UNK
  2. EXCEDRIN (MIGRAINE) [Suspect]
     Indication: MIGRAINE
     Dosage: 2 DF, PRN
     Route: 048
  3. TOPAMAX [Concomitant]
     Indication: MIGRAINE
     Dosage: UNK, QD
  4. EXCEDRIN EXTRA STRENGTH CAPLETS [Suspect]
     Indication: MIGRAINE
     Dosage: 3 DF, ONCE OR TWICE A DAY AS NEEDED
     Route: 048

REACTIONS (8)
  - DIARRHOEA [None]
  - DYSSTASIA [None]
  - GASTROENTERITIS VIRAL [None]
  - NAUSEA [None]
  - FEELING ABNORMAL [None]
  - MALAISE [None]
  - VOMITING [None]
  - MUSCLE SPASMS [None]
